FAERS Safety Report 11977566 (Version 2)
Quarter: 2016Q1

REPORT INFORMATION
  Report Type: Spontaneous
  Country: TW (occurrence: TW)
  Receive Date: 20160129
  Receipt Date: 20160209
  Transmission Date: 20160526
  Serious: Yes (Hospitalization)
  Sender: FDA-Public Use
  Company Number: TW-ASTRAZENECA-2016SE08334

PATIENT
  Age: 27 Year
  Sex: Male
  Weight: 80 kg

DRUGS (4)
  1. APIDRA [Concomitant]
     Active Substance: INSULIN GLULISINE
  2. FORXIGA [Suspect]
     Active Substance: DAPAGLIFLOZIN
     Indication: TYPE 2 DIABETES MELLITUS
     Route: 048
     Dates: start: 20150901, end: 20151215
  3. KOMBIGLYZE XR [Concomitant]
     Active Substance: METFORMIN HYDROCHLORIDE\SAXAGLIPTIN HYDROCHLORIDE
     Dosage: DAILY
     Route: 048
  4. LANTNS [Concomitant]

REACTIONS (3)
  - Diabetic ketoacidosis [Recovered/Resolved]
  - Nausea [Unknown]
  - Nasopharyngitis [Unknown]

NARRATIVE: CASE EVENT DATE: 201512
